FAERS Safety Report 14259920 (Version 2)
Quarter: 2018Q1

REPORT INFORMATION
  Report Type: Report from Study
  Country: CA (occurrence: CA)
  Receive Date: 20171207
  Receipt Date: 20180209
  Transmission Date: 20180508
  Serious: Yes (Hospitalization)
  Sender: FDA-Public Use
  Company Number: CA-ASTRAZENECA-2017SF21588

PATIENT
  Age: 865 Month
  Sex: Female
  Weight: 54.7 kg

DRUGS (6)
  1. AZITHROMYCIN ANHYDROUS. [Concomitant]
     Active Substance: AZITHROMYCIN ANHYDROUS
     Route: 048
  2. REMERON [Concomitant]
     Active Substance: MIRTAZAPINE
  3. AZD2281 [Suspect]
     Active Substance: OLAPARIB
     Indication: FALLOPIAN TUBE CANCER
     Route: 048
     Dates: start: 20171102, end: 20171117
  4. AZD2171 [Suspect]
     Active Substance: CEDIRANIB
     Indication: FALLOPIAN TUBE CANCER
     Route: 048
     Dates: start: 20171102, end: 20171117
  5. SYNTHROID [Concomitant]
     Active Substance: LEVOTHYROXINE SODIUM
  6. ZOFRAN [Concomitant]
     Active Substance: ONDANSETRON HYDROCHLORIDE
     Dosage: 8.0MG AS REQUIRED
     Route: 048

REACTIONS (4)
  - Lung infection [Recovering/Resolving]
  - Nausea [Recovering/Resolving]
  - Cough [Recovered/Resolved]
  - Diarrhoea [Recovering/Resolving]

NARRATIVE: CASE EVENT DATE: 20171117
